FAERS Safety Report 4674155-8 (Version None)
Quarter: 2005Q2

REPORT INFORMATION
  Report Type: 
  Country: None (occurrence: None)
  Receive Date: 20050524
  Receipt Date: 20050524
  Transmission Date: 20051028
  Serious: No
  Sender: FDA-Public Use
  Company Number: None

PATIENT
  Sex: Male
  Weight: 15.1 kg

DRUGS (8)
  1. VINCRISTINE [Suspect]
     Dosage: 1.5 MG/M2 (TOP DOSE 2 MG) GIVEN I.V. ONCE PER WEEK (WEEKS 1-12, 15, 18-24, 27, 30-36, 39)
     Route: 042
     Dates: start: 20050204
  2. DACTINOMYCIN [Suspect]
     Dosage: SEE IMAGE
  3. CYCLOPHOSPHAMIDE [Suspect]
     Dosage: SEE IMAGE
     Route: 042
  4. RADIATION  XRT [Suspect]
     Dosage: SEE IMAGE
  5. MESNA [Suspect]
     Dosage: SEE IMAGE
  6. GM-CSF [Suspect]
     Dosage: SEE IMAGE
  7. BACTRIM [Concomitant]
  8. NEUPOGEN [Concomitant]

REACTIONS (4)
  - CHILLS [None]
  - FEBRILE NEUTROPENIA [None]
  - STOMATITIS [None]
  - THROMBOCYTOPENIA [None]
